FAERS Safety Report 8858016 (Version 1)
Quarter: 2012Q4

REPORT INFORMATION
  Report Type: 
  Country: US (occurrence: US)
  Receive Date: 20121024
  Receipt Date: 20121024
  Transmission Date: 20130627
  Serious: No
  Sender: FDA-Public Use
  Company Number: US-AMGEN-USASP2011062547

PATIENT
  Age: 57 Year
  Sex: Female

DRUGS (5)
  1. ENBREL [Suspect]
     Indication: PSORIASIS
     Dosage: 100 mg, qwk
     Route: 058
     Dates: start: 20070307
  2. ENBREL [Suspect]
     Dosage: 50 mg, 2 times/wk
     Dates: start: 20110921
  3. ULTRAVATE                          /00008504/ [Concomitant]
     Dosage: 0.05 %, bid
     Route: 061
     Dates: start: 20111202
  4. ACYCLOVIR                          /00587301/ [Concomitant]
     Dosage: 400 mg, tid
     Route: 048
     Dates: start: 20100201
  5. PROPANOLOL                         /00030001/ [Concomitant]
     Dosage: UNK
     Route: 048

REACTIONS (3)
  - Stress [Not Recovered/Not Resolved]
  - Incorrect dose administered [Not Recovered/Not Resolved]
  - Psoriasis [Not Recovered/Not Resolved]
